FAERS Safety Report 20221502 (Version 2)
Quarter: 2022Q1

REPORT INFORMATION
  Report Type: Spontaneous
  Country: AT (occurrence: AT)
  Receive Date: 20211223
  Receipt Date: 20220126
  Transmission Date: 20220424
  Serious: No
  Sender: FDA-Public Use
  Company Number: AT-PFIZER INC-202101660809

PATIENT
  Age: 22 Year
  Sex: Female

DRUGS (1)
  1. MEDROXYPROGESTERONE [Suspect]
     Active Substance: MEDROXYPROGESTERONE
     Indication: Contraception
     Dosage: UNK

REACTIONS (3)
  - Device issue [Unknown]
  - Drug dose omission by device [Unknown]
  - Product administration error [Unknown]

NARRATIVE: CASE EVENT DATE: 20211101
